FAERS Safety Report 8624602-1 (Version None)
Quarter: 2012Q3

REPORT INFORMATION
  Report Type: 
  Country: None (occurrence: None)
  Receive Date: 20120827
  Receipt Date: 20120821
  Transmission Date: 20120928
  Serious: Yes (Death)
  Sender: FDA-Public Use
  Company Number: US-CELGENEUS-163-21880-12082429

PATIENT
  Sex: Female

DRUGS (2)
  1. REVLIMID [Suspect]
     Indication: LYMPHOPROLIFERATIVE DISORDER
     Dosage: 10 MILLIGRAM
     Route: 048
     Dates: start: 20110401
  2. REVLIMID [Suspect]
     Indication: MYELODYSPLASTIC SYNDROME
     Dosage: 10 MILLIGRAM
     Route: 048
     Dates: start: 20120301

REACTIONS (1)
  - DEATH [None]
